FAERS Safety Report 23130681 (Version 1)
Quarter: 2023Q4

REPORT INFORMATION
  Report Type: Spontaneous
  Country: US (occurrence: None)
  Receive Date: 20231030
  Receipt Date: 20231030
  Transmission Date: 20240110
  Serious: No
  Sender: FDA-Public Use
  Company Number: None

PATIENT

DRUGS (2)
  1. OLANZAPINE [Suspect]
     Active Substance: OLANZAPINE
     Route: 030
  2. ZYPREXA [Suspect]
     Active Substance: OLANZAPINE
     Route: 030

REACTIONS (2)
  - Product supply issue [None]
  - Product dispensing issue [None]
